FAERS Safety Report 8968908 (Version 1)
Quarter: 2012Q4

REPORT INFORMATION
  Report Type: Spontaneous
  Country: US (occurrence: None)
  Receive Date: 20121214
  Receipt Date: 20121214
  Transmission Date: 20130627
  Serious: Yes (Other)
  Sender: FDA-Public Use
  Company Number: None

PATIENT
  Sex: Female

DRUGS (1)
  1. MIRENA [Suspect]
     Dates: end: 20121128

REACTIONS (8)
  - Aggression [None]
  - Menstruation irregular [None]
  - Libido decreased [None]
  - Anxiety [None]
  - Pelvic pain [None]
  - Menorrhagia [None]
  - Dyspareunia [None]
  - Menstrual disorder [None]
